FAERS Safety Report 9237140 (Version 3)
Quarter: 2013Q4

REPORT INFORMATION
  Report Type: Report from Study
  Country: JP (occurrence: JP)
  Receive Date: 20130417
  Receipt Date: 20131015
  Transmission Date: 20140711
  Serious: No
  Sender: FDA-Public Use
  Company Number: JP-GLAXOSMITHKLINE-B0876733A

PATIENT
  Sex: Male
  Weight: 50 kg

DRUGS (27)
  1. ARRANON [Suspect]
     Indication: PRECURSOR T-LYMPHOBLASTIC LYMPHOMA/LEUKAEMIA
     Dosage: 1500MGM2 PER DAY
     Route: 042
     Dates: start: 20130308, end: 20130312
  2. ARRANON [Suspect]
     Indication: PRECURSOR T-LYMPHOBLASTIC LYMPHOMA/LEUKAEMIA
     Dosage: 1500MGM2 PER DAY
     Route: 042
     Dates: start: 20130330, end: 20130403
  3. ADRIACIN [Concomitant]
     Indication: NEOPLASM MALIGNANT
     Route: 042
     Dates: start: 20130205, end: 20130207
  4. ONCOVIN [Concomitant]
     Indication: NEOPLASM MALIGNANT
     Route: 042
     Dates: start: 20130205, end: 20130212
  5. METHOTREXATE [Concomitant]
     Indication: NEOPLASM MALIGNANT
     Route: 042
     Dates: start: 20130326, end: 20130326
  6. METHOTREXATE [Concomitant]
     Indication: NEOPLASM MALIGNANT
     Route: 042
     Dates: start: 20130412, end: 20130412
  7. METHOTREXATE [Concomitant]
     Indication: NEOPLASM MALIGNANT
     Route: 042
     Dates: start: 20130603, end: 20130603
  8. METHOTREXATE [Concomitant]
     Indication: NEOPLASM MALIGNANT
     Route: 042
     Dates: start: 20130708, end: 20130708
  9. LEUNASE [Concomitant]
     Indication: NEOPLASM MALIGNANT
     Route: 042
     Dates: start: 20130604, end: 20130610
  10. CYLOCIDE [Concomitant]
     Indication: NEOPLASM MALIGNANT
     Route: 042
     Dates: start: 20130326, end: 20130326
  11. CYLOCIDE [Concomitant]
     Indication: NEOPLASM MALIGNANT
     Route: 042
     Dates: start: 20130412, end: 20130412
  12. TAKEPRON [Concomitant]
     Route: 048
     Dates: start: 20130201
  13. ZYLORIC [Concomitant]
     Route: 048
     Dates: start: 20130201
  14. MAGMITT [Concomitant]
     Route: 048
     Dates: start: 20130201
  15. DIFLUCAN [Concomitant]
     Indication: PROPHYLAXIS
     Route: 048
     Dates: start: 20130201
  16. METHYCOBAL [Concomitant]
     Route: 048
     Dates: start: 20130201
  17. URIEF [Concomitant]
     Route: 048
     Dates: start: 20130306, end: 20130313
  18. FINIBAX [Concomitant]
     Route: 042
     Dates: start: 20130310, end: 20130318
  19. FINIBAX [Concomitant]
     Route: 042
     Dates: start: 20130423, end: 20130430
  20. MAXIPIME [Concomitant]
     Route: 042
     Dates: start: 20130307, end: 20130310
  21. CRAVIT [Concomitant]
     Route: 042
     Dates: start: 20130318, end: 20130323
  22. CRAVIT [Concomitant]
     Route: 042
     Dates: start: 20130418, end: 20130422
  23. FLIVAS [Concomitant]
     Route: 048
     Dates: start: 20130313
  24. GASMOTIN [Concomitant]
     Route: 048
     Dates: start: 20130411
  25. LYRICA [Concomitant]
     Route: 048
     Dates: start: 20130416
  26. KN 1A [Concomitant]
     Dates: start: 20130308
  27. SOLDEM 3A [Concomitant]
     Route: 042
     Dates: start: 20130308

REACTIONS (1)
  - Neuropathy peripheral [Unknown]
